FAERS Safety Report 4538317-2 (Version None)
Quarter: 2004Q4

REPORT INFORMATION
  Report Type: 
  Country: None (occurrence: None)
  Receive Date: 20041221
  Receipt Date: 20041206
  Transmission Date: 20050328
  Serious: No
  Sender: FDA-Public Use
  Company Number: 2004AC00956

PATIENT
  Age: 60 Year
  Sex: Female

DRUGS (1)
  1. IRESSA [Suspect]
     Indication: NON-SMALL CELL LUNG CANCER
     Dosage: 250 MG DAILY

REACTIONS (4)
  - ABSCESS LIMB [None]
  - DERMATITIS ACNEIFORM [None]
  - PARONYCHIA [None]
  - SKIN HYPERPIGMENTATION [None]
